FAERS Safety Report 6543919-8 (Version None)
Quarter: 2010Q1

REPORT INFORMATION
  Report Type: 
  Country: None (occurrence: None)
  Receive Date: 20100120
  Receipt Date: 20100114
  Transmission Date: 20100710
  Serious: Yes (Death)
  Sender: FDA-Public Use
  Company Number: GB-TEVA-220977ISR

PATIENT
  Age: 72 Year
  Sex: Female
  Weight: 61 kg

DRUGS (2)
  1. WARFARIN [Suspect]
     Dates: start: 20011101, end: 20011122
  2. GANCICLOVIR [Suspect]
     Indication: CYTOMEGALOVIRUS COLITIS
     Route: 042
     Dates: start: 20011120, end: 20011205

REACTIONS (2)
  - INTERNATIONAL NORMALISED RATIO INCREASED [None]
  - INTESTINAL PERFORATION [None]
